FAERS Safety Report 10477430 (Version 5)
Quarter: 2014Q4

REPORT INFORMATION
  Report Type: Spontaneous
  Country: NL (occurrence: NL)
  Receive Date: 20140926
  Receipt Date: 20141105
  Transmission Date: 20150528
  Serious: Yes (Other)
  Sender: FDA-Public Use
  Company Number: NL-JNJFOC-20140901767

PATIENT
  Age: 50 Year
  Sex: Male

DRUGS (4)
  1. BETNELAN [Concomitant]
     Route: 061
     Dates: start: 20140425
  2. DAKTARIN [Suspect]
     Active Substance: MICONAZOLE NITRATE
     Route: 061
  3. TAVEGYL [Concomitant]
     Active Substance: CLEMASTINE FUMARATE
     Route: 065
     Dates: start: 20140425
  4. DAKTARIN [Suspect]
     Active Substance: MICONAZOLE NITRATE
     Indication: PRODUCT USED FOR UNKNOWN INDICATION
     Route: 061
     Dates: start: 201408

REACTIONS (4)
  - Product quality issue [Recovered/Resolved]
  - Ingrowing nail [Unknown]
  - Localised infection [Recovered/Resolved]
  - Peripheral nerve injury [Unknown]

NARRATIVE: CASE EVENT DATE: 2014
